FAERS Safety Report 5542954-6 (Version None)
Quarter: 2007Q4

REPORT INFORMATION
  Report Type: 
  Country: None (occurrence: None)
  Receive Date: 20071210
  Receipt Date: 20071130
  Transmission Date: 20080405
  Serious: Yes (Hospitalization)
  Sender: FDA-Public Use
  Company Number: JP-MERCK-0710USA01538

PATIENT
  Age: 60 Year
  Sex: Male

DRUGS (6)
  1. ZETIA [Suspect]
     Indication: HYPERCHOLESTEROLAEMIA
     Route: 048
     Dates: start: 20070801, end: 20070911
  2. URSODIOL [Concomitant]
     Indication: HYPERCHOLESTEROLAEMIA
     Route: 065
     Dates: start: 20010725
  3. PHOSPHOLIPIDS (UNSPECIFIED) [Concomitant]
     Route: 065
     Dates: start: 20031108
  4. ALLOPURINOL [Concomitant]
     Route: 065
     Dates: start: 20060916
  5. PIOGLITAZONE HYDROCHLORIDE [Concomitant]
     Route: 065
     Dates: start: 20070507
  6. AMLODIPINE BESYLATE [Concomitant]
     Route: 065
     Dates: start: 20070801

REACTIONS (2)
  - ALCOHOLIC LIVER DISEASE [None]
  - BLOOD CREATINE PHOSPHOKINASE INCREASED [None]
